FAERS Safety Report 16044246 (Version 2)
Quarter: 2019Q1

REPORT INFORMATION
  Report Type: Spontaneous
  Country: ES (occurrence: ES)
  Receive Date: 20190306
  Receipt Date: 20190319
  Transmission Date: 20190418
  Serious: Yes (Other)
  Sender: FDA-Public Use
  Company Number: ES-SHIRE-ES201906843

PATIENT

DRUGS (7)
  1. RITUXIMAB. [Concomitant]
     Active Substance: RITUXIMAB
     Indication: FACTOR VIII DEFICIENCY
  2. RITUXIMAB. [Concomitant]
     Active Substance: RITUXIMAB
     Indication: FACTOR VIII INHIBITION
  3. COAGULATION FACTOR VIII(PLASMA DERIVED) [Suspect]
     Active Substance: ANTIHEMOPHILIC FACTOR HUMAN
     Indication: HAEMOPHILIA A WITH ANTI FACTOR VIII
     Route: 065
  4. FACTOR VIIA, RECOMBINANT [Concomitant]
     Active Substance: COAGULATION FACTOR VIIA RECOMBINANT HUMAN
     Indication: HAEMOPHILIA A WITH ANTI FACTOR VIII
  5. FACTOR VIII (ANTIHAEMOPHILIC FACTOR) [Suspect]
     Active Substance: ANTIHEMOPHILIC FACTOR HUMAN
     Indication: FACTOR VIII DEFICIENCY
     Route: 065
  6. HUMAN FACTOR VIII [Suspect]
     Active Substance: ANTIHEMOPHILIC FACTOR HUMAN
     Indication: FACTOR VIII DEFICIENCY
     Route: 065
  7. FEIBA NF [Concomitant]
     Active Substance: ANTI-INHIBITOR COAGULANT COMPLEX
     Indication: HAEMOPHILIA A WITH ANTI FACTOR VIII
     Route: 065

REACTIONS (4)
  - Therapy non-responder [Unknown]
  - Factor VIII inhibition [Recovered/Resolved]
  - Muscle haemorrhage [Unknown]
  - Haemarthrosis [Unknown]
